FAERS Safety Report 10252713 (Version 1)
Quarter: 2014Q2

REPORT INFORMATION
  Report Type: Spontaneous
  Country: US (occurrence: None)
  Receive Date: 20140619
  Receipt Date: 20140619
  Transmission Date: 20141212
  Serious: Yes (Other)
  Sender: FDA-Public Use
  Company Number: None

PATIENT
  Age: 17 Day
  Sex: Male
  Weight: 453.15 kg

DRUGS (1)
  1. ROCURONIUM [Suspect]
     Indication: MUSCLE RELAXANT THERAPY
     Dosage: AS NEEDED
     Route: 042
     Dates: start: 20140616, end: 20140618

REACTIONS (2)
  - Drug ineffective [None]
  - Product quality issue [None]
